FAERS Safety Report 6229227-3 (Version None)
Quarter: 2009Q2

REPORT INFORMATION
  Report Type: 
  Country: None (occurrence: None)
  Receive Date: 20090611
  Receipt Date: 20090611
  Transmission Date: 20091009
  Serious: Yes (Hospitalization)
  Sender: FDA-Public Use
  Company Number: None

PATIENT
  Age: 88 Year
  Sex: Male
  Weight: 109.45 kg

DRUGS (1)
  1. FLUORESCEIN [Suspect]
     Dates: start: 20081210, end: 20081210

REACTIONS (4)
  - DIZZINESS [None]
  - DYSPNOEA [None]
  - LETHARGY [None]
  - SYNCOPE [None]
